FAERS Safety Report 12716695 (Version 3)
Quarter: 2017Q1

REPORT INFORMATION
  Report Type: Spontaneous
  Country: JP (occurrence: JP)
  Receive Date: 20160906
  Receipt Date: 20170110
  Transmission Date: 20170428
  Serious: Yes (Life-Threatening)
  Sender: FDA-Public Use
  Company Number: JP-PFIZER INC-2016411728

PATIENT
  Age: 32 Year
  Sex: Male
  Weight: 58 kg

DRUGS (17)
  1. SEVOFRANE [Concomitant]
     Active Substance: SEVOFLURANE
     Indication: ANAESTHESIA
  2. NYROZIN [Concomitant]
     Dosage: 1 ML, 1X/DAY
     Route: 042
     Dates: start: 20160810, end: 20160813
  3. PIPERACILLIN NA [Concomitant]
     Dosage: 1 G, 2X/DAY
     Route: 042
     Dates: start: 20160810, end: 20160812
  4. HALCION [Suspect]
     Active Substance: TRIAZOLAM
     Indication: INSOMNIA
     Dosage: 0.125 MG, 1X/DAY
     Route: 048
     Dates: start: 20160809, end: 20160809
  5. SUXAMETHONIUM [Concomitant]
     Active Substance: SUCCINYLCHOLINE
     Dosage: UNK
     Dates: start: 20160810, end: 20160810
  6. BRIDION [Concomitant]
     Active Substance: SUGAMMADEX
     Dosage: UNK
     Dates: start: 20160810, end: 20160810
  7. ISOZOL [Concomitant]
     Active Substance: THIAMYLAL SODIUM
     Dosage: 0.5 G, 1X/DAY
     Dates: start: 20160810, end: 20160810
  8. GASTER [Concomitant]
     Active Substance: FAMOTIDINE
     Dosage: 20 MG, 1X/DAY
     Route: 042
     Dates: start: 20160810, end: 20160810
  9. HARTMANN [Concomitant]
     Active Substance: CALCIUM CHLORIDE\POTASSIUM CHLORIDE\SODIUM CHLORIDE\SODIUM LACTATE
     Dosage: 500 ML, 1X/DAY
     Route: 042
     Dates: start: 20160810, end: 20160810
  10. MIDAZOLAM [Concomitant]
     Active Substance: MIDAZOLAM HYDROCHLORIDE
     Dosage: 10 MG, 1X/DAY
     Dates: start: 20160810, end: 20160810
  11. ESLAX [Concomitant]
     Active Substance: ROCURONIUM BROMIDE
     Dosage: UNK
     Dates: start: 20160810, end: 20160810
  12. ISOTONIC SODIUM CHLORIDE SOLUTION [Concomitant]
     Active Substance: SODIUM CHLORIDE
     Dosage: UNK
     Dates: start: 20160810, end: 20160810
  13. ATROPINE SULFATE. [Concomitant]
     Active Substance: ATROPINE SULFATE
     Dosage: 0.5 MG, 1X/DAY
     Route: 042
     Dates: start: 20160810, end: 20160810
  14. VEEN D [Concomitant]
     Active Substance: CALCIUM CHLORIDE\DEXTROSE\POTASSIUM CHLORIDE\SODIUM ACETATE\SODIUM CHLORIDE
     Dosage: 500 ML, 1X/DAY
     Route: 042
     Dates: start: 20160810, end: 20160813
  15. ASCORBIC ACID. [Concomitant]
     Active Substance: ASCORBIC ACID
     Dosage: UNK UNK, 1X/DAY
     Route: 042
     Dates: start: 20160810, end: 20160813
  16. BROMHEXINE HYDROCHLORIDE [Concomitant]
     Active Substance: BROMHEXINE HYDROCHLORIDE
     Dosage: 1 DF, 1X/DAY
     Route: 042
     Dates: start: 20160810, end: 20160813
  17. SOLITA-T3 [Concomitant]
     Active Substance: POTASSIUM CHLORIDE\SODIUM CHLORIDE\SODIUM LACTATE
     Dosage: 500 ML, 2X/DAY
     Route: 042
     Dates: start: 20160810, end: 20160812

REACTIONS (1)
  - Cardiac arrest [Recovered/Resolved]

NARRATIVE: CASE EVENT DATE: 20160811
